FAERS Safety Report 9925857 (Version 2)
Quarter: 2014Q1

REPORT INFORMATION
  Report Type: Spontaneous
  Country: ZA (occurrence: ZA)
  Receive Date: 20140226
  Receipt Date: 20140324
  Transmission Date: 20141002
  Serious: Yes (Death)
  Sender: FDA-Public Use
  Company Number: ZA-SA-2014SA021967

PATIENT
  Age: 50 Year
  Sex: Female

DRUGS (1)
  1. RENAGEL [Suspect]
     Indication: HYPERPHOSPHATAEMIA
     Route: 048
     Dates: start: 201303

REACTIONS (1)
  - Death [Fatal]
